FAERS Safety Report 5715954-0 (Version None)
Quarter: 2008Q2

REPORT INFORMATION
  Report Type: 
  Country: None (occurrence: None)
  Receive Date: 20080423
  Receipt Date: 20080423
  Transmission Date: 20081010
  Serious: Yes (Other)
  Sender: FDA-Public Use
  Company Number: None

PATIENT
  Age: 70 Year
  Sex: Female
  Weight: 85.2762 kg

DRUGS (1)
  1. CLEOCIN [Suspect]
     Indication: STAPHYLOCOCCAL INFECTION
     Dosage: 4 TEASPOON 3 TIMES PO
     Route: 048
     Dates: start: 20080414, end: 20080418

REACTIONS (4)
  - DIARRHOEA [None]
  - HAEMATOCHEZIA [None]
  - INTESTINAL FUNCTIONAL DISORDER [None]
  - MUCOUS STOOLS [None]
